FAERS Safety Report 9324634 (Version 2)
Quarter: 2013Q3

REPORT INFORMATION
  Report Type: Spontaneous
  Country: US (occurrence: US)
  Receive Date: 20130603
  Receipt Date: 20130718
  Transmission Date: 20140515
  Serious: Yes (Hospitalization)
  Sender: FDA-Public Use
  Company Number: US-B.I. PHARMACEUTICALS,INC./RIDGEFIELD-2013-BI-15205BP

PATIENT
  Age: 77 Year
  Sex: Male
  Weight: 94 kg

DRUGS (6)
  1. PRADAXA [Suspect]
     Indication: CEREBROVASCULAR ACCIDENT PROPHYLAXIS
     Dosage: 300 MG
     Route: 048
     Dates: start: 20111110, end: 201206
  2. PRADAXA [Suspect]
     Indication: ATRIAL FIBRILLATION
     Dosage: 300 MG
     Route: 048
     Dates: end: 20130527
  3. LANOXIN [Concomitant]
     Indication: ATRIAL FIBRILLATION
  4. RHINOCORT [Concomitant]
  5. MULTAQ [Concomitant]
     Indication: ATRIAL FIBRILLATION
  6. GLUCOSAMINE [Concomitant]

REACTIONS (3)
  - Lower gastrointestinal haemorrhage [Recovered/Resolved]
  - Loss of consciousness [Recovered/Resolved]
  - Large intestine polyp [Recovered/Resolved]
